FAERS Safety Report 6931596-3 (Version None)
Quarter: 2010Q3

REPORT INFORMATION
  Report Type: 
  Country: None (occurrence: None)
  Receive Date: 20100816
  Receipt Date: 20100721
  Transmission Date: 20110219
  Serious: Yes (Other)
  Sender: FDA-Public Use
  Company Number: AM0022517

PATIENT
  Age: 59 Year
  Sex: Female

DRUGS (8)
  1. TIMOPTIC [Suspect]
     Indication: GLAUCOMA
     Dosage: BID - 046;
     Dates: start: 20100312
  2. TAFLUPROST 0.0015% (MK-2452) [Suspect]
     Indication: OCULAR HYPERTENSION
     Dosage: QD-046
     Dates: start: 20100312
  3. CENTRUM SILVER [Concomitant]
  4. TRUSOPT [Concomitant]
  5. ASPIRIN [Concomitant]
  6. CALCIUM [Concomitant]
  7. CHONDROITIN SULFATE SODIUM [Concomitant]
  8. GLUCOSAMINE SULFATE [Concomitant]

REACTIONS (1)
  - RETINAL DETACHMENT [None]
